FAERS Safety Report 21068084 (Version 1)
Quarter: 2022Q3

REPORT INFORMATION
  Report Type: Spontaneous
  Country: CN (occurrence: None)
  Receive Date: 20220712
  Receipt Date: 20220712
  Transmission Date: 20221027
  Serious: Yes (Other)
  Sender: FDA-Public Use
  Company Number: CN-ROCHE-3131796

PATIENT
  Age: 43 Year
  Sex: Female
  Weight: 55 kg

DRUGS (13)
  1. HERCEPTIN [Suspect]
     Active Substance: TRASTUZUMAB
     Indication: Breast cancer
     Dosage: PACLITAXEL LIPOSOME +CAPECITABINE +TRASTUZUMAB
     Route: 065
     Dates: start: 20190827
  2. HERCEPTIN [Suspect]
     Active Substance: TRASTUZUMAB
     Dosage: PACLITAXEL LIPOSOME +CAPECITABINE +TRASTUZUMAB
     Route: 065
     Dates: start: 20190919
  3. HERCEPTIN [Suspect]
     Active Substance: TRASTUZUMAB
     Dosage: PACLITAXEL LIPOSOME +CAPECITABINE +TRASTUZUMAB
     Route: 065
     Dates: start: 20191011
  4. HERCEPTIN [Suspect]
     Active Substance: TRASTUZUMAB
     Dosage: CAPECITABINE +TRASTUZUMAB
     Route: 065
     Dates: start: 20200329, end: 20200510
  5. HERCEPTIN [Suspect]
     Active Substance: TRASTUZUMAB
     Dosage: CAPECITABINE +TRASTUZUMAB
     Route: 065
     Dates: start: 20200610
  6. PACLITAXEL [Concomitant]
     Active Substance: PACLITAXEL
     Indication: Breast cancer
     Dosage: PACLITAXEL LIPOSOME +CAPECITABINE +TRASTUZUMAB
     Dates: start: 20190827
  7. PACLITAXEL [Concomitant]
     Active Substance: PACLITAXEL
     Dosage: PACLITAXEL LIPOSOME +CAPECITABINE +TRASTUZUMAB
     Dates: start: 20190919
  8. PACLITAXEL [Concomitant]
     Active Substance: PACLITAXEL
     Dosage: PACLITAXEL LIPOSOME +CAPECITABINE +TRASTUZUMAB
     Dates: start: 20191011
  9. CAPECITABINE [Concomitant]
     Active Substance: CAPECITABINE
     Indication: Breast cancer
     Dosage: PACLITAXEL LIPOSOME +CAPECITABINE +TRASTUZUMAB, NO ROCHE PRODUCT, 3 TABLETS IN THE MORNING AND 2 TAB
     Dates: start: 20190827
  10. CAPECITABINE [Concomitant]
     Active Substance: CAPECITABINE
     Dosage: PACLITAXEL LIPOSOME +CAPECITABINE +TRASTUZUMAB, NO ROCHE PRODUCT, 3 TABLETS IN THE MORNING AND 2 TAB
     Dates: start: 20190919
  11. CAPECITABINE [Concomitant]
     Active Substance: CAPECITABINE
     Dosage: PACLITAXEL LIPOSOME +CAPECITABINE +TRASTUZUMAB, NO ROCHE PRODUCT, 3 TABLETS IN THE MORNING AND 2 TAB
     Dates: start: 20191011
  12. CAPECITABINE [Concomitant]
     Active Substance: CAPECITABINE
     Dosage: CAPECITABINE +TRASTUZUMAB, NO ROCHE PRODUCT, 3 TABLETS IN THE MORNING AND 2 TABLETS  IN THE EVENING
     Dates: start: 20200329, end: 20200510
  13. CAPECITABINE [Concomitant]
     Active Substance: CAPECITABINE
     Dosage: CAPECITABINE +TRASTUZUMAB, NO ROCHE PRODUCT, DF=TABLET
     Dates: start: 20200610

REACTIONS (1)
  - Palmar-plantar erythrodysaesthesia syndrome [Unknown]
